FAERS Safety Report 14489804 (Version 1)
Quarter: 2018Q1

REPORT INFORMATION
  Report Type: Spontaneous
  Country: GB (occurrence: GB)
  Receive Date: 20180206
  Receipt Date: 20180206
  Transmission Date: 20180509
  Serious: Yes (Life-Threatening, Other)
  Sender: FDA-Public Use
  Company Number: GB-ENDO PHARMACEUTICALS INC-2018-016384

PATIENT
  Age: 14 Year
  Sex: Male

DRUGS (1)
  1. FLUOXETINE [Suspect]
     Active Substance: FLUOXETINE HYDROCHLORIDE
     Indication: DEPRESSION
     Dosage: UNK UNK, UNKNOWN
     Route: 065

REACTIONS (4)
  - Serotonin syndrome [Recovered/Resolved]
  - Dysarthria [Recovered/Resolved]
  - Hemiplegia [Recovered/Resolved]
  - Sensory disturbance [Recovered/Resolved]
